FAERS Safety Report 13725532 (Version 2)
Quarter: 2017Q3

REPORT INFORMATION
  Report Type: Spontaneous
  Country: US (occurrence: US)
  Receive Date: 20170707
  Receipt Date: 20170822
  Transmission Date: 20171127
  Serious: Yes (Hospitalization)
  Sender: FDA-Public Use
  Company Number: US-LPDUSPRD-20170926

PATIENT
  Age: 27 Year
  Sex: Male

DRUGS (3)
  1. DOCUSATE [Concomitant]
     Active Substance: DOCUSATE
     Dosage: UNKNOWN
     Route: 065
  2. LEVETIRACETAM INJECTION (0517-3605-01) [Suspect]
     Active Substance: LEVETIRACETAM
     Dosage: 1000 MG TWICE DAILY
     Route: 065
  3. HEPARIN [Concomitant]
     Active Substance: HEPARIN SODIUM
     Dosage: UNKNOWN
     Route: 065

REACTIONS (1)
  - Rhabdomyolysis [Unknown]
